FAERS Safety Report 5238529-9 (Version None)
Quarter: 2007Q1

REPORT INFORMATION
  Report Type: 
  Country: None (occurrence: None)
  Receive Date: 20070215
  Receipt Date: 20070212
  Transmission Date: 20070707
  Serious: Yes (Other)
  Sender: FDA-Public Use
  Company Number: VN-GLAXOSMITHKLINE-B0456495A

PATIENT
  Age: 27 Year
  Sex: Male

DRUGS (6)
  1. BLINDED TRIAL MEDICATION [Suspect]
     Indication: HIV INFECTION
     Route: 048
     Dates: start: 20060416
  2. COMBIVIR [Suspect]
     Indication: HIV INFECTION
     Dosage: 1TAB TWICE PER DAY
     Route: 048
  3. EFAVIRENZ [Suspect]
     Indication: HIV INFECTION
     Dosage: 600MG PER DAY
     Route: 048
  4. RIFAMPICIN [Suspect]
     Indication: MENINGITIS TUBERCULOUS
  5. ISONIAZID [Suspect]
     Indication: MENINGITIS TUBERCULOUS
  6. CO-TRIMOXAZOLE [Suspect]

REACTIONS (2)
  - HEPATITIS [None]
  - JAUNDICE [None]
